FAERS Safety Report 8396933-4 (Version None)
Quarter: 2012Q2

REPORT INFORMATION
  Report Type: 
  Country: None (occurrence: None)
  Receive Date: 20120530
  Receipt Date: 20120524
  Transmission Date: 20120825
  Serious: No
  Sender: FDA-Public Use
  Company Number: US-PFIZER INC-2012126130

PATIENT
  Sex: Female
  Weight: 51.247 kg

DRUGS (5)
  1. PRISTIQ [Suspect]
     Indication: DEPRESSION
  2. PRISTIQ [Suspect]
     Indication: ANXIETY
     Dosage: 50 MG, DAILY
     Dates: start: 20120501
  3. PRISTIQ [Suspect]
     Indication: SLEEP DISORDER
  4. PRISTIQ [Suspect]
     Indication: AGITATION
  5. PRISTIQ [Suspect]
     Indication: TREMOR

REACTIONS (2)
  - ANXIETY [None]
  - DRUG EFFECT DECREASED [None]
